FAERS Safety Report 9346967 (Version 5)
Quarter: 2014Q3

REPORT INFORMATION
  Report Type: Spontaneous
  Country: US (occurrence: US)
  Receive Date: 20130613
  Receipt Date: 20140919
  Transmission Date: 20150326
  Serious: Yes (Hospitalization, Disabling, Other)
  Sender: FDA-Public Use
  Company Number: US-009507513-1203USA03471

PATIENT
  Sex: Female
  Weight: 63.49 kg

DRUGS (3)
  1. FOSAMAX [Suspect]
     Active Substance: ALENDRONATE SODIUM
     Indication: OSTEOPENIA
     Dosage: 70 MG, QW
     Route: 048
  2. FOSAMAX [Suspect]
     Active Substance: ALENDRONATE SODIUM
     Dosage: 70 MG, QW
     Route: 048
     Dates: start: 20010326, end: 20060808
  3. FOSAMAX [Suspect]
     Active Substance: ALENDRONATE SODIUM
     Dosage: 10 MG, QD
     Route: 048
     Dates: start: 20000824, end: 20001124

REACTIONS (40)
  - Nasal disorder [Unknown]
  - Stress fracture [Unknown]
  - Femur fracture [Unknown]
  - Ligament rupture [Unknown]
  - Thyroid neoplasm [Unknown]
  - Tonsillectomy [Unknown]
  - Tuberculosis [Unknown]
  - Fracture nonunion [Not Recovered/Not Resolved]
  - Rotator cuff syndrome [Unknown]
  - Influenza [Unknown]
  - Hypertension [Unknown]
  - Breast lump removal [Unknown]
  - Visual acuity reduced [Unknown]
  - Oedema peripheral [Unknown]
  - Low turnover osteopathy [Unknown]
  - Seborrhoeic keratosis [Unknown]
  - Osteoarthritis [Unknown]
  - Tinea infection [Unknown]
  - Sinus disorder [Unknown]
  - Peripheral swelling [Unknown]
  - Osteoporosis [Unknown]
  - Hypercholesterolaemia [Unknown]
  - Blood pressure increased [Unknown]
  - Oedema [Unknown]
  - Muscle spasms [Unknown]
  - Fall [Unknown]
  - Cyst removal [Unknown]
  - Medical device removal [Unknown]
  - Tooth fracture [Unknown]
  - Vitamin D deficiency [Unknown]
  - Pneumonia [Unknown]
  - Pharyngeal disorder [Unknown]
  - Intramedullary rod insertion [Unknown]
  - Femur fracture [Unknown]
  - Electrocardiogram ST segment abnormal [Unknown]
  - Fracture nonunion [Unknown]
  - Idiopathic urticaria [Unknown]
  - Chronic obstructive pulmonary disease [Unknown]
  - Sunburn [Unknown]
  - Back pain [Unknown]

NARRATIVE: CASE EVENT DATE: 2000
